FAERS Safety Report 6540061-7 (Version None)
Quarter: 2010Q1

REPORT INFORMATION
  Report Type: 
  Country: None (occurrence: None)
  Receive Date: 20100111
  Receipt Date: 20091221
  Transmission Date: 20100710
  Serious: Yes (Other)
  Sender: FDA-Public Use
  Company Number: AEUSA200900338

PATIENT
  Age: 81 Year
  Sex: Female

DRUGS (1)
  1. IMMUNE GLOBULIN INTRAVENOUS (HUMAN) [Suspect]
     Indication: CHRONIC INFLAMMATORY DEMYELINATING POLYRADICULONEUROPATHY
     Dosage: 0.6 GM/ KG; QM; IV
     Route: 042

REACTIONS (8)
  - BRAIN STEM STROKE [None]
  - CEREBELLAR SYNDROME [None]
  - DYSPHAGIA [None]
  - HAEMORRHAGE [None]
  - NAUSEA [None]
  - SENSORY DISTURBANCE [None]
  - VERTIGO [None]
  - VOMITING [None]
